FAERS Safety Report 10019622 (Version 2)
Quarter: 2014Q1

REPORT INFORMATION
  Report Type: Spontaneous
  Country: JP (occurrence: JP)
  Receive Date: 20140318
  Receipt Date: 20140327
  Transmission Date: 20141002
  Serious: Yes (Other)
  Sender: FDA-Public Use
  Company Number: JP-PFIZER INC-2014076967

PATIENT
  Age: 89 Year
  Sex: Male

DRUGS (2)
  1. SELARA [Suspect]
     Dosage: 50 MG, DAILY
     Route: 048
  2. OPALMON [Suspect]
     Route: 048

REACTIONS (1)
  - Blood pressure increased [Recovering/Resolving]
